FAERS Safety Report 9253281 (Version 2)
Quarter: 2013Q2

REPORT INFORMATION
  Report Type: Spontaneous
  Country: BE (occurrence: BE)
  Receive Date: 20130424
  Receipt Date: 20130510
  Transmission Date: 20140414
  Serious: Yes (Hospitalization)
  Sender: FDA-Public Use
  Company Number: BE-B.I. PHARMACEUTICALS,INC./RIDGEFIELD-2013-BL-00205BL

PATIENT
  Age: 68 Year
  Sex: Male
  Weight: 104 kg

DRUGS (6)
  1. PRADAXA [Suspect]
     Indication: ATRIAL FIBRILLATION
     Dosage: 220 MG
     Route: 048
     Dates: start: 20111227
  2. PROGOR [Concomitant]
     Indication: HYPERTENSIVE HEART DISEASE
     Dosage: 120 MG
  3. ALDACTONE [Concomitant]
     Indication: HYPERTENSIVE HEART DISEASE
     Dosage: 12.5 MG
  4. LASIX [Concomitant]
     Indication: HYPERTENSIVE HEART DISEASE
     Dosage: 20 MG
  5. BISOPROLOL [Concomitant]
     Indication: HYPERTENSIVE HEART DISEASE
     Dosage: 5 MG
  6. MICARDIS [Concomitant]
     Indication: HYPERTENSIVE HEART DISEASE
     Dosage: 80 MG

REACTIONS (1)
  - Renal infarct [Recovered/Resolved]
